FAERS Safety Report 14752776 (Version 10)
Quarter: 2020Q4

REPORT INFORMATION
  Report Type: Report from Study
  Country: US (occurrence: US)
  Receive Date: 20180412
  Receipt Date: 20201217
  Transmission Date: 20210113
  Serious: Yes (Death, Hospitalization, Other)
  Sender: FDA-Public Use
  Company Number: PHEH2018US012573

PATIENT
  Age: 13 Year
  Sex: Female
  Weight: 54 kg

DRUGS (4)
  1. KYMRIAH [Suspect]
     Active Substance: TISAGENLECLEUCEL
     Indication: B-CELL TYPE ACUTE LEUKAEMIA
     Dosage: 1 DF, ONCE/SINGLE
     Route: 041
     Dates: start: 20180322
  2. KYMRIAH [Suspect]
     Active Substance: TISAGENLECLEUCEL
     Dosage: 1 DF, ONCE/SINGLE
     Route: 041
     Dates: start: 20181112
  3. CYCLOPHOSPHAMIDE. [Concomitant]
     Active Substance: CYCLOPHOSPHAMIDE
     Indication: CHEMOTHERAPY
     Dosage: UNK
     Route: 065
  4. FLUDARABINE [Concomitant]
     Active Substance: FLUDARABINE PHOSPHATE
     Indication: CHEMOTHERAPY
     Dosage: UNK
     Route: 065

REACTIONS (16)
  - B-cell type acute leukaemia [Fatal]
  - Pyrexia [Recovered/Resolved]
  - Haematocrit decreased [Unknown]
  - Minimal residual disease [Unknown]
  - Haemoglobin decreased [Unknown]
  - White blood cell count increased [Recovering/Resolving]
  - Lymphocyte count decreased [Unknown]
  - Lymphocyte count increased [Recovering/Resolving]
  - Tachycardia [Unknown]
  - Platelet count decreased [Unknown]
  - White blood cell count decreased [Recovering/Resolving]
  - Neutrophil count decreased [Recovered/Resolved]
  - Recurrent cancer [Fatal]
  - Cytokine release syndrome [Recovered/Resolved]
  - Hypogammaglobulinaemia [Recovered/Resolved]
  - Off label use [Unknown]

NARRATIVE: CASE EVENT DATE: 20180326
